FAERS Safety Report 10214499 (Version 1)
Quarter: 2014Q2

REPORT INFORMATION
  Report Type: Spontaneous
  Country: US (occurrence: US)
  Receive Date: 20140603
  Receipt Date: 20140603
  Transmission Date: 20141212
  Serious: No
  Sender: FDA-Public Use
  Company Number: US-ASTRAZENECA-2014SE35842

PATIENT
  Age: 61 Year
  Sex: Female
  Weight: 102.1 kg

DRUGS (8)
  1. ATENOLOL [Suspect]
     Indication: BLOOD PRESSURE
     Dosage: GENERIC DAILY
     Route: 048
     Dates: start: 20090622, end: 20100414
  2. LISINOPRIL + HCTZ [Suspect]
     Indication: BLOOD PRESSURE
     Route: 048
     Dates: start: 20100414
  3. LISINOPRIL + HCTZ [Suspect]
     Indication: BLOOD PRESSURE
     Route: 048
     Dates: start: 2013
  4. CRESTOR [Suspect]
     Indication: BLOOD CHOLESTEROL ABNORMAL
     Route: 048
     Dates: start: 2006, end: 2006
  5. CITALOPRAM [Concomitant]
  6. FINASTERIDE [Concomitant]
     Indication: ALOPECIA
     Dates: start: 201010
  7. SPIRONOLACTONE [Concomitant]
     Indication: ALOPECIA
     Dates: start: 201010
  8. PHENTERMINE [Concomitant]
     Indication: WEIGHT DECREASED
     Dates: start: 2009

REACTIONS (14)
  - Blood pressure abnormal [Recovered/Resolved]
  - Peripheral swelling [Unknown]
  - Dyspnoea [Unknown]
  - Alopecia [Unknown]
  - Stress [Unknown]
  - Eczema [Unknown]
  - Rosacea [Unknown]
  - Capillary fragility [Unknown]
  - Pruritus [Recovered/Resolved]
  - Erythema [Recovered/Resolved]
  - Skin fissures [Unknown]
  - Drug hypersensitivity [Unknown]
  - Renal pain [Unknown]
  - Weight decreased [Unknown]
